FAERS Safety Report 4817410-0 (Version None)
Quarter: 2005Q4

REPORT INFORMATION
  Report Type: 
  Country: None (occurrence: None)
  Receive Date: 20051031
  Receipt Date: 20051021
  Transmission Date: 20060501
  Serious: Yes (Death, Life-Threatening, Hospitalization, Disabling, Other)
  Sender: FDA-Public Use
  Company Number: 2005145753

PATIENT
  Age: 14 Year
  Sex: Male
  Weight: 46.8 kg

DRUGS (1)
  1. GENOTROPIN [Suspect]
     Indication: HYPOPITUITARISM
     Dosage: 1.4 MG (DAILY)
     Dates: start: 20020709

REACTIONS (2)
  - GLIOBLASTOMA [None]
  - NEOPLASM RECURRENCE [None]
